FAERS Safety Report 7904450-8 (Version None)
Quarter: 2011Q4

REPORT INFORMATION
  Report Type: 
  Country: None (occurrence: None)
  Receive Date: 20111109
  Receipt Date: 20111103
  Transmission Date: 20120403
  Serious: Yes (Hospitalization)
  Sender: FDA-Public Use
  Company Number: CZ-ABBOTT-11P-217-0871415-00

PATIENT
  Sex: Male

DRUGS (3)
  1. ANTIEPILEPTIC THERAPY [Concomitant]
     Indication: EPILEPSY
  2. HUMIRA [Suspect]
     Indication: RHEUMATOID ARTHRITIS
     Route: 058
     Dates: start: 20110701
  3. TAMSULOSIN HCL [Concomitant]
     Indication: PRODUCT USED FOR UNKNOWN INDICATION

REACTIONS (23)
  - TREMOR [None]
  - DEMENTIA [None]
  - HYPOKINESIA [None]
  - CONFABULATION [None]
  - MOVEMENT DISORDER [None]
  - COGNITIVE DISORDER [None]
  - FACIAL PARESIS [None]
  - BRAIN NEOPLASM [None]
  - CEREBRAL CALCIFICATION [None]
  - DYSPNOEA [None]
  - BRADYPHRENIA [None]
  - MENTAL DISORDER [None]
  - EXECUTIVE DYSFUNCTION [None]
  - EPILEPSY [None]
  - OVERWEIGHT [None]
  - SLEEP DISORDER [None]
  - DEPRESSION [None]
  - PSEUDOCYST [None]
  - SINUS POLYP [None]
  - APHASIA [None]
  - URINARY INCONTINENCE [None]
  - DISORIENTATION [None]
  - DELIRIUM [None]
